FAERS Safety Report 25908430 (Version 2)
Quarter: 2025Q4

REPORT INFORMATION
  Report Type: Report from Study
  Country: US (occurrence: None)
  Receive Date: 20251010
  Receipt Date: 20251222
  Transmission Date: 20260118
  Serious: Yes (Hospitalization, Other)
  Sender: UCB
  Company Number: US-UCBSA-2025063382

PATIENT
  Age: 29 Year

DRUGS (2)
  1. MIDAZOLAM [Suspect]
     Active Substance: MIDAZOLAM
     Indication: Epilepsy
     Dosage: 5MG SPRAY INTO EACH NOSTRIL AS NEEDED
  2. BRIVIACT [Suspect]
     Active Substance: BRIVARACETAM
     Indication: Epilepsy
     Dosage: 50 MILLIGRAM, 2X/DAY (BID)
     Route: 061

REACTIONS (4)
  - Seizure [Unknown]
  - Anaemia [Unknown]
  - Urinary tract infection [Unknown]
  - Product dose omission issue [Unknown]
